FAERS Safety Report 6768918-2 (Version None)
Quarter: 2010Q2

REPORT INFORMATION
  Report Type: 
  Country: None (occurrence: None)
  Receive Date: 20100615
  Receipt Date: 20100601
  Transmission Date: 20101027
  Serious: Yes (Other)
  Sender: FDA-Public Use
  Company Number: US-RANBAXY-2010US-34164

PATIENT

DRUGS (4)
  1. LORATADINE [Suspect]
     Indication: RHINORRHOEA
     Dosage: 10 MG, QD
     Route: 065
  2. LORATADINE [Suspect]
     Indication: EYE PRURITUS
  3. LORATADINE [Suspect]
     Indication: LACRIMATION INCREASED
  4. METOPROLOL TARTRATE [Suspect]
     Indication: ATRIAL FIBRILLATION
     Dosage: UNK UNK, BID
     Route: 065

REACTIONS (1)
  - ATRIAL FIBRILLATION [None]
